FAERS Safety Report 8011707-1 (Version None)
Quarter: 2011Q4

REPORT INFORMATION
  Report Type: 
  Country: None (occurrence: None)
  Receive Date: 20111228
  Receipt Date: 20111226
  Transmission Date: 20120403
  Serious: Yes (Death, Life-Threatening, Hospitalization, Other)
  Sender: FDA-Public Use
  Company Number: PHHY2011JP88167

PATIENT
  Sex: Male

DRUGS (31)
  1. DEXALTIN [Concomitant]
     Dosage: UNK UKN, UNK
  2. SEISHOKU [Concomitant]
     Dosage: 100 ML, DAILY
     Dates: start: 20111002, end: 20111004
  3. TOFRANIL [Concomitant]
     Dosage: 30 MG, DAILY
     Route: 048
     Dates: start: 20110927
  4. FAMOTIDINE [Concomitant]
     Dosage: 20 MG, DAILY
     Dates: start: 20110927, end: 20111003
  5. PACIL [Concomitant]
     Dosage: 1000 MG, DAILY
     Dates: start: 20111002
  6. PREDNISOLONE [Concomitant]
     Dosage: 60 MG, DAILY
     Dates: start: 20111002, end: 20111003
  7. SILECE [Concomitant]
     Dosage: 2 MG, DAILY
     Route: 048
     Dates: start: 20110927, end: 20111002
  8. HALCION [Concomitant]
     Dosage: 0.25 MG, DAILY
     Route: 048
     Dates: start: 20110927, end: 20111003
  9. MEILAX [Concomitant]
     Dosage: 1 MG, DAILY
  10. SEISHOKU [Concomitant]
     Dosage: 10 ML, DAILY
  11. PURSENNID [Concomitant]
     Dosage: UNK UKN, UNK
     Dates: start: 20110928
  12. HYDREA [Concomitant]
     Dosage: 1000 MG, DAILY
     Route: 048
     Dates: start: 20110928, end: 20111001
  13. NOVO HEPARIN [Concomitant]
     Dosage: 10000 IU, DAILY
     Dates: start: 20110927
  14. SEISHOKU [Concomitant]
     Dosage: 20 ML, DAILY
     Dates: start: 20111002
  15. FUNGUARD [Concomitant]
     Dosage: 150 MG, UNK
     Dates: start: 20111002, end: 20111004
  16. DEXTROSE [Concomitant]
     Dosage: 1000 ML
     Dates: end: 20111005
  17. MEILAX [Concomitant]
     Dosage: 1 MG, DAILY
     Route: 048
     Dates: start: 20110927
  18. MUCODYNE [Concomitant]
     Dosage: 1000 MG, DAILY
     Route: 048
  19. MUCODYNE [Concomitant]
     Dosage: 1500 MG, DAILY
     Route: 048
     Dates: start: 20111001
  20. SULFAMETHOXAZOLE AND TRIMETHOPRIM [Concomitant]
     Dosage: 2 DF, DAILY
     Route: 048
     Dates: start: 20111002, end: 20111003
  21. TOFRANIL [Concomitant]
     Dosage: 10 MG, DAILY
     Route: 048
  22. ALLOPURINOL [Concomitant]
     Dosage: 200 MG, DAILY
     Route: 048
     Dates: start: 20110927, end: 20111003
  23. HYDREA [Concomitant]
     Dosage: 1500 MG, DAILY
     Dates: start: 20111002, end: 20111003
  24. MAGNESIUM OXIDE [Concomitant]
     Dosage: 1 G, DAILY
     Route: 048
     Dates: start: 20111001
  25. TASIGNA [Suspect]
     Indication: CHRONIC MYELOID LEUKAEMIA
     Dosage: 150 MG, QD
     Route: 048
     Dates: start: 20111003, end: 20111003
  26. ZOLPIDEM [Concomitant]
     Dosage: 5 MG, DAILY
     Route: 048
     Dates: start: 20110927, end: 20111003
  27. LAXOBERON [Concomitant]
     Dosage: UNK UKN, UNK
     Dates: start: 20110929
  28. LENDORMIN [Concomitant]
     Dosage: UNK UKN, UNK
     Route: 048
     Dates: start: 20111001
  29. SODIUM CHLORIDE SOLUTION [Concomitant]
     Dosage: 500 MG, DAILY
     Dates: start: 20110927
  30. DEXTROSE [Concomitant]
     Dosage: 500 ML
     Dates: start: 20111004
  31. GLYCYRRHIZIC ACID, AMMONIUM SALT [Concomitant]
     Dosage: 60 ML
     Dates: start: 20111005, end: 20111005

REACTIONS (17)
  - COMA [None]
  - ARTERIAL HAEMORRHAGE [None]
  - EMPHYSEMA [None]
  - NAUSEA [None]
  - NEOPLASM PROGRESSION [None]
  - NEOPLASM MALIGNANT [None]
  - SUBCUTANEOUS HAEMATOMA [None]
  - ASCITES [None]
  - HEPATITIS FULMINANT [None]
  - DECREASED APPETITE [None]
  - DISSEMINATED INTRAVASCULAR COAGULATION [None]
  - COAGULOPATHY [None]
  - TUMOUR LYSIS SYNDROME [None]
  - METABOLIC ACIDOSIS [None]
  - HYPERGLYCAEMIA [None]
  - JAUNDICE [None]
  - ABDOMINAL PAIN UPPER [None]
